FAERS Safety Report 10056141 (Version 2)
Quarter: 2014Q2

REPORT INFORMATION
  Report Type: Spontaneous
  Country: US (occurrence: US)
  Receive Date: 20140403
  Receipt Date: 20140423
  Transmission Date: 20141212
  Serious: No
  Sender: FDA-Public Use
  Company Number: US-PFIZER INC-2014094000

PATIENT
  Sex: Male

DRUGS (3)
  1. LYRICA [Suspect]
     Dosage: 300 MG, UNK
  2. LYRICA [Suspect]
     Dosage: 200 MG, 2X/DAY
  3. LYRICA [Suspect]
     Dosage: 100 MG, DAILY

REACTIONS (1)
  - Drug intolerance [Unknown]
